FAERS Safety Report 4609888-2 (Version None)
Quarter: 2005Q1

REPORT INFORMATION
  Report Type: 
  Country: None (occurrence: None)
  Receive Date: 20050316
  Receipt Date: 20050308
  Transmission Date: 20050727
  Serious: Yes (Life-Threatening, Hospitalization)
  Sender: FDA-Public Use
  Company Number: US-MERCK-0503USA01224

PATIENT
  Age: 37 Year
  Sex: Male

DRUGS (3)
  1. VIOXX [Suspect]
     Indication: PAIN
     Route: 048
     Dates: start: 20011201, end: 20011201
  2. AMBIEN [Concomitant]
     Route: 065
  3. TALWIN [Concomitant]
     Route: 065

REACTIONS (1)
  - ANAPHYLACTIC SHOCK [None]
